FAERS Safety Report 10217418 (Version 1)
Quarter: 2014Q2

REPORT INFORMATION
  Report Type: Spontaneous
  Country: US (occurrence: US)
  Receive Date: 20140604
  Receipt Date: 20140604
  Transmission Date: 20141212
  Serious: Yes (Hospitalization)
  Sender: FDA-Public Use
  Company Number: US-ACTELION-A-US2014-099880

PATIENT
  Age: 80 Year
  Sex: Male

DRUGS (4)
  1. TRACLEER [Suspect]
     Indication: PULMONARY EMBOLISM
     Dosage: UNK
     Route: 048
  2. VENTAVIS [Suspect]
     Indication: PULMONARY EMBOLISM
     Dosage: UNK
     Route: 055
  3. RIOCIGUAT [Concomitant]
  4. COUMADIN [Concomitant]

REACTIONS (1)
  - Pancreatitis [Not Recovered/Not Resolved]
